FAERS Safety Report 6659885-0 (Version None)
Quarter: 2010Q1

REPORT INFORMATION
  Report Type: 
  Country: None (occurrence: None)
  Receive Date: 20100330
  Receipt Date: 20100330
  Transmission Date: 20100710
  Serious: Yes (Other)
  Sender: FDA-Public Use
  Company Number: None

PATIENT
  Age: 71 Year
  Sex: Female
  Weight: 76.2043 kg

DRUGS (3)
  1. FENTANYL [Suspect]
     Indication: BLADDER SPASM
     Dosage: PATCH TRANSDERMAL
     Route: 062
     Dates: start: 20100303, end: 20100303
  2. FENTANYL [Suspect]
     Indication: NEPHROLITHIASIS
     Dosage: PATCH TRANSDERMAL
     Route: 062
     Dates: start: 20100303, end: 20100303
  3. FENTANYL [Suspect]
     Indication: PAIN
     Dosage: PATCH TRANSDERMAL
     Route: 062
     Dates: start: 20100303, end: 20100303

REACTIONS (3)
  - ABNORMAL BEHAVIOUR [None]
  - MALAISE [None]
  - MEMORY IMPAIRMENT [None]
